FAERS Safety Report 5726538-2 (Version None)
Quarter: 2008Q2

REPORT INFORMATION
  Report Type: 
  Country: None (occurrence: None)
  Receive Date: 20080502
  Receipt Date: 20080424
  Transmission Date: 20081010
  Serious: Yes (Hospitalization)
  Sender: FDA-Public Use
  Company Number: US-MERCK-0804USA05238

PATIENT
  Age: 31 Year
  Sex: Female

DRUGS (6)
  1. EMEND [Suspect]
     Indication: PROPHYLAXIS OF NAUSEA AND VOMITING
     Route: 048
     Dates: start: 20080220, end: 20080220
  2. EMEND [Suspect]
     Route: 048
     Dates: start: 20080221, end: 20080222
  3. EMEND [Suspect]
     Route: 048
     Dates: start: 20080101, end: 20080101
  4. TAXOTERE [Concomitant]
     Route: 065
  5. DOXORUBICIN [Concomitant]
     Route: 065
  6. CYTOXAN [Concomitant]
     Route: 065

REACTIONS (2)
  - ATRIAL FIBRILLATION [None]
  - TACHYCARDIA [None]
